FAERS Safety Report 6557231-4 (Version None)
Quarter: 2010Q1

REPORT INFORMATION
  Report Type: 
  Country: None (occurrence: None)
  Receive Date: 20100129
  Receipt Date: 20100127
  Transmission Date: 20100710
  Serious: Yes (Other)
  Sender: FDA-Public Use
  Company Number: US-ASTRAZENECA-2009UW04116

PATIENT
  Age: 13168 Day
  Sex: Female
  Weight: 132.4 kg

DRUGS (15)
  1. SEROQUEL [Suspect]
     Indication: DEPRESSION
     Dosage: 25 MG TO 100 MG
     Route: 048
     Dates: start: 20020626, end: 20030201
  2. SEROQUEL [Suspect]
     Indication: DYSTHYMIC DISORDER
     Dosage: 25 MG TO 100 MG
     Route: 048
     Dates: start: 20020626, end: 20030201
  3. SEROQUEL [Suspect]
     Indication: POST-TRAUMATIC STRESS DISORDER
     Dosage: 25 MG TO 100 MG
     Route: 048
     Dates: start: 20020626, end: 20030201
  4. SEROQUEL [Suspect]
     Indication: PANIC DISORDER
     Dosage: 25 MG TO 100 MG
     Route: 048
     Dates: start: 20020626, end: 20030201
  5. SEROQUEL [Suspect]
     Indication: AGORAPHOBIA
     Dosage: 25 MG TO 100 MG
     Route: 048
     Dates: start: 20020626, end: 20030201
  6. XENICAL [Concomitant]
  7. RISPERDAL [Concomitant]
     Dosage: 3 MG TO 6 MG
     Dates: start: 20030401, end: 20060101
  8. ZYPREXA [Concomitant]
     Dosage: 2.5 MG TO 20 MG
     Dates: start: 20020101
  9. XANAX [Concomitant]
     Dosage: 0.5 MG TO 1 MG
  10. LEXAPRO [Concomitant]
  11. ZOLOFT [Concomitant]
     Dosage: 100 MG TO 200 MG
  12. DEPAKOTE [Concomitant]
     Dosage: 250 MG TO 500 MG
     Dates: end: 20020201
  13. TRAZODONE [Concomitant]
     Dates: end: 20020201
  14. PAXIL [Concomitant]
     Dates: start: 20020113
  15. PROZAC [Concomitant]
     Dates: start: 20020113

REACTIONS (4)
  - OBESITY [None]
  - THROMBOSIS [None]
  - TYPE 2 DIABETES MELLITUS [None]
  - WEIGHT INCREASED [None]
